FAERS Safety Report 25569184 (Version 3)
Quarter: 2025Q3

REPORT INFORMATION
  Report Type: Spontaneous
  Country: CL (occurrence: CL)
  Receive Date: 20250716
  Receipt Date: 20250908
  Transmission Date: 20251020
  Serious: No
  Sender: PFIZER
  Company Number: CL-PFIZER INC-PV202500084239

PATIENT
  Age: 10 Year
  Sex: Male

DRUGS (2)
  1. GENOTROPIN [Suspect]
     Active Substance: SOMATROPIN
  2. GENOTROPIN [Suspect]
     Active Substance: SOMATROPIN

REACTIONS (1)
  - Device leakage [Unknown]
